FAERS Safety Report 5578122-1 (Version None)
Quarter: 2007Q4

REPORT INFORMATION
  Report Type: 
  Country: None (occurrence: None)
  Receive Date: 20071227
  Receipt Date: 20071213
  Transmission Date: 20080405
  Serious: Yes (Other)
  Sender: FDA-Public Use
  Company Number: DSA_31078_2007

PATIENT
  Age: 73 Year
  Sex: Female
  Weight: 77.1115 kg

DRUGS (1)
  1. TIAZAC [Suspect]
     Indication: HYPERTENSION
     Dosage: (360 MG QD ORAL)
     Route: 048

REACTIONS (2)
  - BRADYCARDIA [None]
  - FATIGUE [None]
